FAERS Safety Report 18600268 (Version 1)
Quarter: 2020Q4

REPORT INFORMATION
  Report Type: Spontaneous
  Country: US (occurrence: US)
  Receive Date: 20201210
  Receipt Date: 20201210
  Transmission Date: 20210114
  Serious: No
  Sender: FDA-Public Use
  Company Number: None

PATIENT
  Age: 50 Year
  Sex: Female
  Weight: 117 kg

DRUGS (2)
  1. NEULASTA [Suspect]
     Active Substance: PEGFILGRASTIM
     Indication: WHITE BLOOD CELL COUNT
     Dosage: ?          QUANTITY:1 INJECTION(S);OTHER FREQUENCY:DAY AFTER CHEMOTHE;?
     Route: 058
     Dates: start: 20190411, end: 20190530
  2. MELATONIN [Concomitant]
     Active Substance: MELATONIN

REACTIONS (2)
  - Urticaria [None]
  - Peripheral swelling [None]

NARRATIVE: CASE EVENT DATE: 20190607
